FAERS Safety Report 6328562-8 (Version None)
Quarter: 2009Q3

REPORT INFORMATION
  Report Type: 
  Country: None (occurrence: None)
  Receive Date: 20090826
  Receipt Date: 20080104
  Transmission Date: 20100115
  Serious: Yes (Other)
  Sender: FDA-Public Use
  Company Number: US-ASTRAZENECA-2006UW23595

PATIENT
  Age: 51 Year
  Sex: Female
  Weight: 159.9 kg

DRUGS (32)
  1. SEROQUEL [Suspect]
     Indication: HALLUCINATION
     Dosage: 600 MG, 900 MG
     Route: 048
     Dates: start: 20000101, end: 20020101
  2. SEROQUEL [Suspect]
     Indication: DEPRESSION
     Dosage: 600 MG, 900 MG
     Route: 048
     Dates: start: 20000101, end: 20020101
  3. SEROQUEL [Suspect]
     Indication: BIPOLAR DISORDER
     Dosage: 600 MG, 900 MG
     Route: 048
     Dates: start: 20000101, end: 20020101
  4. SEROQUEL [Suspect]
     Indication: INSOMNIA
     Dosage: 600 MG, 900 MG
     Route: 048
     Dates: start: 20000101, end: 20020101
  5. SEROQUEL [Suspect]
     Dosage: STRENGTH-200MG, 300MG, 700MG, 800MG, 900MG DOSE-200-900MG
     Route: 048
     Dates: start: 20020919
  6. SEROQUEL [Suspect]
     Dosage: STRENGTH-200MG, 300MG, 700MG, 800MG, 900MG DOSE-200-900MG
     Route: 048
     Dates: start: 20020919
  7. SEROQUEL [Suspect]
     Dosage: STRENGTH-200MG, 300MG, 700MG, 800MG, 900MG DOSE-200-900MG
     Route: 048
     Dates: start: 20020919
  8. SEROQUEL [Suspect]
     Dosage: STRENGTH-200MG, 300MG, 700MG, 800MG, 900MG DOSE-200-900MG
     Route: 048
     Dates: start: 20020919
  9. SEROQUEL [Suspect]
     Route: 048
     Dates: start: 20030101, end: 20070101
  10. SEROQUEL [Suspect]
     Route: 048
     Dates: start: 20030101, end: 20070101
  11. SEROQUEL [Suspect]
     Route: 048
     Dates: start: 20030101, end: 20070101
  12. SEROQUEL [Suspect]
     Route: 048
     Dates: start: 20030101, end: 20070101
  13. HALDOL [Concomitant]
  14. RISPERDAL [Concomitant]
     Dosage: STRENGTH-2MG, 3MG, 9MG DOSE-2-9 MG
     Dates: start: 20001025
  15. ZYPREXA [Concomitant]
  16. ZOLOFT [Concomitant]
     Dosage: STRENGTH-100MG, 150MG, 200MG DOSE-100-200MG
     Route: 048
     Dates: start: 20020919
  17. ZOLOFT [Concomitant]
     Dates: start: 20050101, end: 20070101
  18. PROLIXIN [Concomitant]
     Dosage: STRENGTH 10MG, 20MG. DOSE-10-20 MG DAILY
     Route: 048
     Dates: start: 20000101
  19. EFFEXOR XR [Concomitant]
     Dosage: STRENGTH-75MG, 150MG DOSE-75-150MG
     Route: 048
     Dates: start: 20020919
  20. CELEBREX [Concomitant]
     Route: 048
     Dates: start: 20020919
  21. NEURONTIN [Concomitant]
     Indication: PAIN IN EXTREMITY
     Dates: start: 20050515
  22. PREDNISONE [Concomitant]
     Indication: SARCOIDOSIS
     Dosage: STRENGTH-5MG, 10MG, 20MG DOSE-5-20MG
     Route: 048
     Dates: start: 20021010
  23. LASIX [Concomitant]
     Dosage: STRENGTH-60MG, 40MG DOSE-60MG-40MG
     Dates: start: 20050513
  24. LISINOPRIL [Concomitant]
     Indication: BLOOD PRESSURE
     Dosage: STRENGTH-10MG, 20MG, 40MG DOSE-10-40MG
     Dates: start: 20050513
  25. BENZONATATE [Concomitant]
     Dates: start: 20050516
  26. FOSAMAX [Concomitant]
     Dates: start: 20050610
  27. LIPITOR [Concomitant]
     Route: 048
     Dates: start: 20050823
  28. TOPROL-XL [Concomitant]
     Dosage: STRENGTH-25MG, 50MG DOSE-25-50MG
     Route: 048
     Dates: start: 20021010
  29. TRAMADOL HCL [Concomitant]
     Dates: start: 20050920
  30. COGENTIN [Concomitant]
     Dosage: STRENGTH-1MG, 2MG DOSE-2MG-4MG
     Route: 048
     Dates: start: 20001025
  31. DIGOXIN [Concomitant]
     Route: 048
     Dates: start: 20001025
  32. ISOSORBIDE DINITRATE [Concomitant]
     Route: 048
     Dates: start: 20001212

REACTIONS (6)
  - BLOOD CHOLESTEROL INCREASED [None]
  - BLOOD TRIGLYCERIDES INCREASED [None]
  - DIABETES MELLITUS [None]
  - DIABETIC NEUROPATHY [None]
  - PANCREATITIS [None]
  - TYPE 2 DIABETES MELLITUS [None]
